FAERS Safety Report 7710967-1 (Version None)
Quarter: 2011Q3

REPORT INFORMATION
  Report Type: 
  Country: None (occurrence: None)
  Receive Date: 20110825
  Receipt Date: 20110817
  Transmission Date: 20111222
  Serious: Yes (Hospitalization, Other)
  Sender: FDA-Public Use
  Company Number: US-RB-024933-11

PATIENT
  Age: 22 Year
  Sex: Female

DRUGS (4)
  1. ATIVAN [Concomitant]
     Indication: ANXIETY
     Dosage: DOSING INFORMATION UNKNOWN/TAKEN AS NEEDED
     Route: 065
  2. CYMBALTA [Concomitant]
     Indication: DEPRESSION
     Dosage: DOSING INFORMATION UNKNOWN
     Route: 065
  3. AMBIEN [Concomitant]
     Indication: SLEEP DISORDER
     Dosage: DOSING INFORMATION UNKNOWN- TAKEN NIGHTLY
     Route: 065
  4. SUBOXONE [Suspect]
     Indication: DRUG DEPENDENCE
     Dosage: SUBLINGUAL FILM
     Route: 060
     Dates: start: 20110301

REACTIONS (8)
  - SWELLING [None]
  - DEPRESSION [None]
  - OFF LABEL USE [None]
  - ANXIETY [None]
  - CONSTIPATION [None]
  - DRUG INEFFECTIVE [None]
  - VOMITING [None]
  - ASTHENIA [None]
